FAERS Safety Report 7587245-7 (Version None)
Quarter: 2011Q3

REPORT INFORMATION
  Report Type: 
  Country: None (occurrence: None)
  Receive Date: 20110701
  Receipt Date: 20110627
  Transmission Date: 20111222
  Serious: Yes (Life-Threatening, Hospitalization)
  Sender: FDA-Public Use
  Company Number: CH-ROCHE-774140

PATIENT
  Sex: Female

DRUGS (7)
  1. ACTEMRA [Suspect]
     Dosage: FORM:INFUSION
     Route: 042
     Dates: start: 20100528, end: 20100806
  2. ACTEMRA [Suspect]
     Indication: RHEUMATOID ARTHRITIS
     Route: 042
     Dates: start: 20090605, end: 20091218
  3. RITUXAN [Suspect]
     Indication: RHEUMATOID ARTHRITIS
     Dosage: FORM: INFUSION
     Route: 042
     Dates: start: 20101123, end: 20101209
  4. METHOTREXATE SODIUM [Concomitant]
     Dates: start: 20060701, end: 20091101
  5. AREDIA [Concomitant]
     Dates: start: 20060101, end: 20060101
  6. BONIVA [Suspect]
     Route: 065
     Dates: start: 20090101, end: 20101222
  7. PREDNISONE [Concomitant]

REACTIONS (7)
  - SEPSIS [None]
  - POLYNEUROPATHY [None]
  - RENAL FAILURE [None]
  - ACUTE RESPIRATORY DISTRESS SYNDROME [None]
  - POST PROCEDURAL INFECTION [None]
  - PNEUMONIA RESPIRATORY SYNCYTIAL VIRAL [None]
  - ARTHRITIS [None]
